FAERS Safety Report 16154518 (Version 3)
Quarter: 2019Q3

REPORT INFORMATION
  Report Type: Report from Study
  Country: US (occurrence: US)
  Receive Date: 20190403
  Receipt Date: 20190703
  Transmission Date: 20191004
  Serious: Yes (Hospitalization, Other)
  Sender: FDA-Public Use
  Company Number: US-MALLINCKRODT-T201802738

PATIENT
  Sex: Female

DRUGS (4)
  1. REPOSITORY CORTICOTROPIN INJECTION [Suspect]
     Active Substance: CORTICOTROPIN
     Indication: POLYMYOSITIS
     Dosage: 80 UNITS/1 ML, 2 TIMES PER WEEK MONDAY/THURSDAY
     Route: 058
     Dates: start: 20180625, end: 2018
  2. REPOSITORY CORTICOTROPIN INJECTION [Suspect]
     Active Substance: CORTICOTROPIN
     Dosage: 80 UNITS/1 ML, 2 TIMES PER WEEK TUESDAY/FRIDAY
     Route: 058
     Dates: start: 2018, end: 20190228
  3. PREDNISONE. [Concomitant]
     Active Substance: PREDNISONE
     Indication: LUNG DISORDER
     Dosage: UNK
     Route: 065
  4. MYCOPHENOLATE [Concomitant]
     Active Substance: MYCOPHENOLIC ACID
     Indication: POLYMYOSITIS
     Dosage: UNK
     Route: 065

REACTIONS (21)
  - Bedridden [Unknown]
  - Polymyositis [Unknown]
  - Immunodeficiency [Unknown]
  - Arthritis [Unknown]
  - Heart rate increased [Not Recovered/Not Resolved]
  - Oxygen saturation decreased [Not Recovered/Not Resolved]
  - Blood glucose fluctuation [Unknown]
  - Underdose [Unknown]
  - Fatigue [Not Recovered/Not Resolved]
  - Hypoxia [Not Recovered/Not Resolved]
  - Condition aggravated [Unknown]
  - Pneumonia [Unknown]
  - Pneumonitis [Unknown]
  - Product dose omission [Unknown]
  - Heart rate decreased [Unknown]
  - Mobility decreased [Unknown]
  - Thyroid disorder [Unknown]
  - Cough [Unknown]
  - Inflammation [Unknown]
  - Nasopharyngitis [Unknown]
  - Weight decreased [Unknown]

NARRATIVE: CASE EVENT DATE: 2018
